FAERS Safety Report 24987560 (Version 3)
Quarter: 2025Q1

REPORT INFORMATION
  Report Type: Report from Study
  Country: CA (occurrence: CA)
  Receive Date: 20250219
  Receipt Date: 20250321
  Transmission Date: 20250409
  Serious: Yes (Hospitalization)
  Sender: TAIHO ONCOLOGY INC
  Company Number: CA-TAIHOP-2025-001736

PATIENT
  Age: 80 Year
  Sex: Male

DRUGS (1)
  1. INQOVI [Suspect]
     Active Substance: CEDAZURIDINE\DECITABINE
     Indication: Myelodysplastic syndrome
     Dosage: 135 MG (DECITABINE 35 MG + CEDAZURIDINE 100 MG) ON DAYS 1 TO 5, EVERY 28 DAYS; HAD SECOND CYCLE IN F
     Route: 048
     Dates: start: 20250123

REACTIONS (5)
  - Illness [Unknown]
  - Vomiting [Unknown]
  - Asthenia [Unknown]
  - Gait disturbance [Unknown]
  - Transfusion [Unknown]
